FAERS Safety Report 7681077-7 (Version None)
Quarter: 2011Q3

REPORT INFORMATION
  Report Type: 
  Country: None (occurrence: None)
  Receive Date: 20110812
  Receipt Date: 20110808
  Transmission Date: 20111222
  Serious: No
  Sender: FDA-Public Use
  Company Number: US-PFIZER INC-2011182202

PATIENT
  Sex: Female
  Weight: 31.3 kg

DRUGS (2)
  1. VITAMIN D [Concomitant]
     Dosage: 2000 IU, UNK
     Route: 048
  2. GENOTROPIN [Suspect]
     Dosage: 1.6 MG, SEVEN DAYS A WEEK
     Route: 058

REACTIONS (3)
  - NAUSEA [None]
  - VOMITING [None]
  - VISION BLURRED [None]
